FAERS Safety Report 7708203-5 (Version None)
Quarter: 2011Q3

REPORT INFORMATION
  Report Type: 
  Country: None (occurrence: None)
  Receive Date: 20110825
  Receipt Date: 20110815
  Transmission Date: 20111222
  Serious: No
  Sender: FDA-Public Use
  Company Number: US-BIOGENIDEC-2011BI031274

PATIENT
  Sex: Female

DRUGS (3)
  1. TYSABRI [Suspect]
     Indication: MULTIPLE SCLEROSIS
     Route: 042
     Dates: start: 20080716
  2. FIORICET [Concomitant]
     Indication: NECK PAIN
  3. MAXALT [Concomitant]
     Indication: NECK PAIN

REACTIONS (5)
  - ANXIETY [None]
  - INTERVERTEBRAL DISC PROTRUSION [None]
  - HEADACHE [None]
  - URTICARIA [None]
  - NECK PAIN [None]
